FAERS Safety Report 11865893 (Version 2)
Quarter: 2015Q4

REPORT INFORMATION
  Report Type: Spontaneous
  Country: US (occurrence: US)
  Receive Date: 20151223
  Receipt Date: 20151230
  Transmission Date: 20160305
  Serious: Yes (Other)
  Sender: FDA-Public Use
  Company Number: US-SETON PHARMACEUTICALS, LLC-2015SET00005

PATIENT
  Age: 76 Year
  Sex: Female
  Weight: 48.98 kg

DRUGS (5)
  1. LIDOCAINE 3% CREAM [Suspect]
     Active Substance: LIDOCAINE
     Indication: POST HERPETIC NEURALGIA
     Dosage: 3 %, UNK
     Route: 061
     Dates: start: 20150728, end: 201508
  2. LIDOCAINE 3% CREAM [Suspect]
     Active Substance: LIDOCAINE
     Dosage: 3 %, UNK
     Route: 061
     Dates: start: 201510, end: 20151106
  3. RED RICE YEAST [Concomitant]
     Active Substance: DIETARY SUPPLEMENT
     Dosage: UNK, 1X/DAY
  4. UNSPECIFIED ANTIBIOTIC [Suspect]
     Active Substance: UNSPECIFIED INGREDIENT
     Dosage: UNK
     Dates: start: 20150817, end: 201511
  5. TYLENOL [Concomitant]
     Active Substance: ACETAMINOPHEN
     Dosage: UNK, AS NEEDED

REACTIONS (4)
  - Vision blurred [Recovering/Resolving]
  - Visual impairment [Recovering/Resolving]
  - Surgery [Unknown]
  - Product use issue [Not Recovered/Not Resolved]

NARRATIVE: CASE EVENT DATE: 20150728
